FAERS Safety Report 5535766-0 (Version None)
Quarter: 2007Q4

REPORT INFORMATION
  Report Type: 
  Country: None (occurrence: None)
  Receive Date: 20071206
  Receipt Date: 20071203
  Transmission Date: 20080405
  Serious: Yes (Life-Threatening, Other)
  Sender: FDA-Public Use
  Company Number: PHEH2007US05344

PATIENT
  Age: 50 Year
  Sex: Female
  Weight: 66.666 kg

DRUGS (7)
  1. TEGRETOL [Suspect]
     Indication: NEURALGIA
     Dosage: 200 MG, BID
     Route: 048
     Dates: start: 20050819, end: 20050905
  2. PREDNISONE TAB [Suspect]
     Dosage: 20 MG, BID
     Dates: end: 20050912
  3. FENTANYL [Concomitant]
     Indication: MULTIPLE SCLEROSIS
  4. SYNTHROID [Concomitant]
     Dosage: UNK, DAILY
  5. PREVACID [Suspect]
     Dates: end: 20050902
  6. VALPROIC ACID [Concomitant]
     Dosage: 500 MG, UNK
  7. SINGULAIR [Concomitant]
     Dosage: 10 MG, QD
     Route: 048

REACTIONS (12)
  - BLISTER [None]
  - DRUG HYPERSENSITIVITY [None]
  - ERYTHEMA MULTIFORME [None]
  - INJURY [None]
  - OEDEMA PERIPHERAL [None]
  - PAIN [None]
  - RASH MACULAR [None]
  - RASH PRURITIC [None]
  - SKIN BURNING SENSATION [None]
  - SKIN EXFOLIATION [None]
  - STEVENS-JOHNSON SYNDROME [None]
  - URINARY TRACT INFECTION STAPHYLOCOCCAL [None]
